FAERS Safety Report 17292267 (Version 1)
Quarter: 2020Q1

REPORT INFORMATION
  Report Type: Report from Study
  Country: US (occurrence: US)
  Receive Date: 20200121
  Receipt Date: 20200121
  Transmission Date: 20200409
  Serious: Yes (Hospitalization)
  Sender: FDA-Public Use
  Company Number: US-BAYER-2019-228345

PATIENT
  Age: 78 Year
  Sex: Male

DRUGS (12)
  1. XIFAXAN [Concomitant]
     Active Substance: RIFAXIMIN
     Dosage: UNK
  2. DEXAMETHASONE. [Concomitant]
     Active Substance: DEXAMETHASONE
     Dosage: UNK
  3. DULOXETINE. [Concomitant]
     Active Substance: DULOXETINE
     Dosage: UNK
  4. PANTOPRAZOLE [Concomitant]
     Active Substance: PANTOPRAZOLE
     Dosage: UNK
  5. FENTANYL. [Concomitant]
     Active Substance: FENTANYL
     Dosage: UNK
  6. FUROSEMIDE. [Concomitant]
     Active Substance: FUROSEMIDE
     Dosage: UNK
  7. PREDNISONE. [Concomitant]
     Active Substance: PREDNISONE
     Dosage: UNK
  8. NEXAVAR [Suspect]
     Active Substance: SORAFENIB
     Indication: NEOPLASM
     Dosage: 400 MG, BID
     Dates: start: 20191130, end: 2019
  9. MORPHINE SULFATE. [Concomitant]
     Active Substance: MORPHINE SULFATE
     Dosage: UNK
  10. OXYCODONE [Concomitant]
     Active Substance: OXYCODONE
     Dosage: UNK
  11. ZOLPIDEM [Concomitant]
     Active Substance: ZOLPIDEM TARTRATE
     Dosage: UNK
  12. NEXAVAR [Suspect]
     Active Substance: SORAFENIB
     Indication: NEOPLASM
     Dosage: 200 MG, QD
     Dates: start: 2019, end: 20191210

REACTIONS (3)
  - Confusional state [Not Recovered/Not Resolved]
  - Lethargy [Not Recovered/Not Resolved]
  - Blood sodium decreased [Not Recovered/Not Resolved]

NARRATIVE: CASE EVENT DATE: 20191202
